FAERS Safety Report 6607711-8 (Version None)
Quarter: 2010Q1

REPORT INFORMATION
  Report Type: 
  Country: None (occurrence: None)
  Receive Date: 20100223
  Receipt Date: 20100216
  Transmission Date: 20100710
  Serious: Yes (Hospitalization)
  Sender: FDA-Public Use
  Company Number: A-US2006-13391

PATIENT
  Age: 55 Year
  Sex: Female
  Weight: 136.1 kg

DRUGS (8)
  1. TRACLEER [Suspect]
     Indication: PULMONARY ARTERIAL HYPERTENSION
     Dosage: 125 MG, BID, ORAL 62.5MG, BID, ORAL
     Route: 048
     Dates: start: 20040101
  2. TRACLEER [Suspect]
     Indication: PULMONARY ARTERIAL HYPERTENSION
     Dosage: 125 MG, BID, ORAL 62.5MG, BID, ORAL
     Route: 048
     Dates: start: 20041001
  3. REVATIO [Concomitant]
  4. DILTIAZEM HCL [Concomitant]
  5. LASIX [Concomitant]
  6. ALDACTONE [Concomitant]
  7. CELEXA [Concomitant]
  8. PROTONIX [Concomitant]

REACTIONS (3)
  - ATRIAL FIBRILLATION [None]
  - FLUID RETENTION [None]
  - PNEUMONIA [None]
